FAERS Safety Report 25112442 (Version 1)
Quarter: 2025Q1

REPORT INFORMATION
  Report Type: Spontaneous
  Country: US (occurrence: US)
  Receive Date: 20250324
  Receipt Date: 20250324
  Transmission Date: 20250408
  Serious: No
  Sender: CALLIDITAS THERAPEUTICS AB
  Company Number: US-Calliditas-2025CAL00691

PATIENT
  Age: 64 Year
  Sex: Female

DRUGS (6)
  1. TARPEYO [Suspect]
     Active Substance: BUDESONIDE
     Indication: IgA nephropathy
     Route: 048
     Dates: start: 20250109
  2. XANAX [Concomitant]
     Active Substance: ALPRAZOLAM
  3. LABETALOL [Concomitant]
     Active Substance: LABETALOL
  4. HYDRALAZINE [Concomitant]
     Active Substance: HYDRALAZINE HYDROCHLORIDE
  5. NORVASC [Concomitant]
     Active Substance: AMLODIPINE BESYLATE
  6. CLONIDINE [Concomitant]
     Active Substance: CLONIDINE

REACTIONS (3)
  - Intentional underdose [Not Recovered/Not Resolved]
  - Headache [Recovering/Resolving]
  - Muscle spasms [Recovering/Resolving]
